FAERS Safety Report 6230305-3 (Version None)
Quarter: 2009Q2

REPORT INFORMATION
  Report Type: 
  Country: None (occurrence: None)
  Receive Date: 20090615
  Receipt Date: 20090611
  Transmission Date: 20091009
  Serious: Yes (Hospitalization)
  Sender: FDA-Public Use
  Company Number: FR-MERCK-0904FRA00008

PATIENT
  Age: 77 Year
  Sex: Male

DRUGS (14)
  1. PRIMAXIN [Suspect]
     Indication: INFECTION
     Route: 042
     Dates: start: 20090312, end: 20090327
  2. AMIKACIN SULFATE [Concomitant]
     Indication: INFECTION
     Route: 042
     Dates: start: 20090312, end: 20090314
  3. FUROSEMIDE [Concomitant]
     Indication: CARDIAC FAILURE
     Route: 048
  4. TRANDOLAPRIL [Concomitant]
     Indication: CARDIAC FAILURE
     Route: 047
  5. FERROUS SULFATE [Concomitant]
     Indication: ANAEMIA
     Route: 048
  6. PREDNISOLONE SODIUM METASULFOBENZOATE [Concomitant]
     Indication: BRONCHITIS CHRONIC
     Route: 048
  7. ACETAMINOPHEN [Concomitant]
     Indication: PYREXIA
     Route: 065
     Dates: end: 20090401
  8. CLONAZEPAM [Concomitant]
     Indication: INSOMNIA
     Route: 065
  9. TIOTROPIUM BROMIDE [Concomitant]
     Indication: BRONCHITIS CHRONIC
  10. FLUTICASONE PROPIONATE AND SALMETEROL XINAFOATE [Concomitant]
     Indication: BRONCHITIS CHRONIC
  11. TERBUTALINE SULFATE [Concomitant]
     Indication: BRONCHITIS CHRONIC
  12. IPRATROPIUM BROMIDE [Concomitant]
     Indication: BRONCHITIS CHRONIC
  13. INSULIN GLARGINE [Concomitant]
     Indication: DIABETES MELLITUS
     Route: 058
  14. PRISTINAMYCIN [Concomitant]
     Indication: ERYSIPELAS
     Route: 065
     Dates: start: 20090401, end: 20090401

REACTIONS (2)
  - ERYSIPELAS [None]
  - THROMBOCYTOPENIA [None]
